FAERS Safety Report 8246460-X (Version None)
Quarter: 2012Q1

REPORT INFORMATION
  Report Type: 
  Country: None (occurrence: None)
  Receive Date: 20120329
  Receipt Date: 20120329
  Transmission Date: 20120608
  Serious: No
  Sender: FDA-Public Use
  Company Number: None

PATIENT

DRUGS (1)
  1. CHERATUSSIN AC [Suspect]
     Indication: OROPHARYNGEAL PAIN
     Dosage: 1 TSP PO EVERY 4 HOURS AS NEEDED
     Dates: start: 20120303, end: 20120305

REACTIONS (1)
  - OROPHARYNGEAL PAIN [None]
